FAERS Safety Report 16473693 (Version 2)
Quarter: 2019Q3

REPORT INFORMATION
  Report Type: Spontaneous
  Country: JP (occurrence: JP)
  Receive Date: 20190625
  Receipt Date: 20190726
  Transmission Date: 20191004
  Serious: Yes (Hospitalization)
  Sender: FDA-Public Use
  Company Number: JP-UCBSA-2019025715

PATIENT
  Age: 84 Year
  Sex: Female

DRUGS (4)
  1. VIMPAT [Suspect]
     Active Substance: LACOSAMIDE
     Indication: EPILEPSY
     Dosage: UNK
     Route: 048
     Dates: start: 20180829
  2. E KEPPRA [Concomitant]
     Active Substance: LEVETIRACETAM
     Indication: EPILEPSY
     Route: 048
  3. LIXIANA [Concomitant]
     Active Substance: EDOXABAN TOSYLATE
     Indication: PRODUCT USED FOR UNKNOWN INDICATION
     Route: 048
  4. LIXIANA [Concomitant]
     Active Substance: EDOXABAN TOSYLATE
     Route: 048

REACTIONS (3)
  - Status epilepticus [Unknown]
  - Tachycardia [Recovering/Resolving]
  - Sinus arrest [Recovering/Resolving]
